FAERS Safety Report 25927955 (Version 1)
Quarter: 2025Q4

REPORT INFORMATION
  Report Type: Spontaneous
  Country: CA (occurrence: CA)
  Receive Date: 20251016
  Receipt Date: 20251016
  Transmission Date: 20260118
  Serious: Yes (Hospitalization, Other)
  Sender: Haleon PLC
  Company Number: CA-HALEON-2188397

PATIENT
  Sex: Female

DRUGS (82)
  1. FLONASE [Suspect]
     Active Substance: FLUTICASONE PROPIONATE
     Indication: Product used for unknown indication
     Dosage: PATIENT ROA: UNKNOWN
  2. NICOTINELL [Suspect]
     Active Substance: NICOTINE
     Indication: Product used for unknown indication
     Dosage: DOSE FORM: NOT SPECIFIED
     Route: 062
  3. TUMS [Suspect]
     Active Substance: CALCIUM CARBONATE
     Indication: Product used for unknown indication
     Dosage: PATIENT ROA: UNKNOWN?DOSE FORM: NOT SPECIFIED
  4. TUMS [Suspect]
     Active Substance: CALCIUM CARBONATE
     Dosage: PATIENT ROA: UNKNOWN
  5. ACETAMINOPHEN [Suspect]
     Active Substance: ACETAMINOPHEN
     Indication: Product used for unknown indication
     Dosage: PATIENT ROA: UNKNOWN
  6. ACETAMINOPHEN [Suspect]
     Active Substance: ACETAMINOPHEN
     Dosage: PATIENT ROA: UNKNOWN
  7. ACETAMINOPHEN [Suspect]
     Active Substance: ACETAMINOPHEN
     Dosage: PATIENT ROA: UNKNOWN?DOSE FORM: UNSPECIFIED
  8. ADALIMUMAB [Suspect]
     Active Substance: ADALIMUMAB
     Indication: Product used for unknown indication
     Dosage: DOSE FORM: SOLUTION SUBCUTANEOUS?PATIENT ROA: UNKNOWN
  9. ALPRAZOLAM [Suspect]
     Active Substance: ALPRAZOLAM
     Indication: Product used for unknown indication
     Dosage: PATIENT ROA: UNKNOWN
  10. ALPRAZOLAM [Suspect]
     Active Substance: ALPRAZOLAM
     Dosage: PATIENT ROA: UNKNOWN
  11. BETAMETHASONE DIPROPIONATE [Suspect]
     Active Substance: BETAMETHASONE DIPROPIONATE
     Indication: Product used for unknown indication
     Dosage: PATIENT ROA: UNKNOWN
  12. BETAMETHASONE DIPROPIONATE [Suspect]
     Active Substance: BETAMETHASONE DIPROPIONATE
     Dosage: PATIENT ROA: UNKNOWN?DOSE FORM: NOT SPECIFIED
  13. BETAMETHASONE VALERATE [Suspect]
     Active Substance: BETAMETHASONE VALERATE
     Indication: Product used for unknown indication
     Dosage: PATIENT ROA: UNKNOWN
  14. BETAMETHASONE VALERATE [Suspect]
     Active Substance: BETAMETHASONE VALERATE
     Dosage: PATIENT ROA: UNKNOWN
  15. BIAXIN [Concomitant]
     Active Substance: CLARITHROMYCIN
     Indication: Product used for unknown indication
     Dosage: PATIENT ROA: UNKNOWN?DOSE FORM: TABLET (EXTENDED- RELEASE)
  16. BISACODYL [Suspect]
     Active Substance: BISACODYL
     Indication: Product used for unknown indication
     Dosage: PATIENT ROA: UNKNOWN?DOSE FORM: NOT SPECIFIED
  17. BISACODYL [Suspect]
     Active Substance: BISACODYL
     Dosage: PATIENT ROA: UNKNOWN
  18. CALTRATE [Suspect]
     Active Substance: CALCIUM CARBONATE
     Indication: Product used for unknown indication
     Dosage: PATIENT ROA: UNKNOWN
  19. CALTRATE [Suspect]
     Active Substance: CALCIUM CARBONATE
     Dosage: PATIENT ROA: UNKNOWN
  20. BUDESONIDE [Suspect]
     Active Substance: BUDESONIDE
     Indication: Product used for unknown indication
     Dosage: PATIENT ROA: UNKNOWN?DOSE FORM: NOT SPECIFIED
  21. BUDESONIDE [Suspect]
     Active Substance: BUDESONIDE
     Dosage: PATIENT ROA: UNKNOWN
  22. CETIRIZINE HYDROCHLORIDE [Suspect]
     Active Substance: CETIRIZINE HYDROCHLORIDE
     Indication: Product used for unknown indication
     Dosage: PATIENT ROA: UNKNOWN
  23. CHOLECALCIFEROL [Suspect]
     Active Substance: CHOLECALCIFEROL
     Indication: Product used for unknown indication
     Dosage: PATIENT ROA: UNKNOWN?DOSE FORM: NOT SPECIFIED
  24. CLARITHROMYCIN [Suspect]
     Active Substance: CLARITHROMYCIN
     Indication: Product used for unknown indication
     Dosage: PATIENT ROA: UNKNOWN?DOSE FORM: NOT SPECIFIED
  25. CLARITHROMYCIN [Suspect]
     Active Substance: CLARITHROMYCIN
     Dosage: PATIENT ROA: UNKNOWN
  26. CLOTRIMAZOLE [Suspect]
     Active Substance: CLOTRIMAZOLE
     Indication: Product used for unknown indication
     Dosage: PATIENT ROA: UNKNOWN?DOSE FORM: NOT SPECIFIED
  27. CLOTRIMAZOLE [Suspect]
     Active Substance: CLOTRIMAZOLE
     Dosage: PATIENT ROA: UNKNOWN
  28. CUPRIC OXIDE [Suspect]
     Active Substance: CUPRIC OXIDE
     Indication: Product used for unknown indication
     Dosage: PATIENT ROA: UNKNOWN?DOSE FORM: NOT SPECIFIED
  29. DESONIDE [Suspect]
     Active Substance: DESONIDE
     Indication: Product used for unknown indication
     Dosage: PATIENT ROA: UNKNOWN?DOSE FORM: NOT SPECIFIED
  30. DILAUDID [Suspect]
     Active Substance: HYDROMORPHONE HYDROCHLORIDE
     Indication: Product used for unknown indication
     Dosage: PATIENT ROA: UNKNOWN?DOSE FORM: NOT SPECIFIED
  31. DIPHENHYDRAMINE [Suspect]
     Active Substance: DIPHENHYDRAMINE
     Indication: Product used for unknown indication
     Dosage: PATIENT ROA: UNKNOWN
  32. DIPHENHYDRAMINE HYDROCHLORIDE [Suspect]
     Active Substance: DIPHENHYDRAMINE HYDROCHLORIDE
     Indication: Product used for unknown indication
     Dosage: PATIENT ROA: UNKNOWN
  33. ERGOCALCIFEROL [Suspect]
     Active Substance: ERGOCALCIFEROL
     Indication: Product used for unknown indication
     Dosage: PATIENT ROA: UNKNOWN?DOSE FORM: NOT SPECIFIED
  34. ERTAPENEM SODIUM [Suspect]
     Active Substance: ERTAPENEM SODIUM
     Indication: Product used for unknown indication
     Dosage: PATIENT ROA: UNKNOWN
  35. FLOVENT [Suspect]
     Active Substance: FLUTICASONE PROPIONATE
     Indication: Product used for unknown indication
     Dosage: PATIENT ROA: UNKNOWN?DOSE FORM: NOT SPECIFIED
  36. GRAMICIDIN\NEOMYCIN SULFATE\POLYMYXIN B SULFATE [Suspect]
     Active Substance: GRAMICIDIN\NEOMYCIN SULFATE\POLYMYXIN B SULFATE
     Indication: Product used for unknown indication
     Dosage: PATIENT ROA: UNKNOWN
  37. HYDROMORPHONE HYDROCHLORIDE [Suspect]
     Active Substance: HYDROMORPHONE HYDROCHLORIDE
     Indication: Product used for unknown indication
     Dosage: PATIENT ROA: UNKNOWN
  38. MAGNESIUM SULFATE, UNSPECIFIED\POLYETHYLENE GLYCOL 3350\POTASSIUM CHLO [Suspect]
     Active Substance: MAGNESIUM SULFATE, UNSPECIFIED\POLYETHYLENE GLYCOL 3350\POTASSIUM CHLORIDE\POTASSIUM SULFATE\SODIUM
     Indication: Product used for unknown indication
     Dosage: PATIENT ROA: UNKNOWN
  39. MESALAMINE [Suspect]
     Active Substance: MESALAMINE
     Indication: Product used for unknown indication
     Dosage: PATIENT ROA: UNKNOWN?DOSE FORM: NOT SPECIFIED
  40. MESALAMINE [Suspect]
     Active Substance: MESALAMINE
     Dosage: PATIENT ROA: UNKNOWN
  41. METRONIDAZOLE [Suspect]
     Active Substance: METRONIDAZOLE
     Indication: Product used for unknown indication
     Dosage: PATIENT ROA: UNKNOWN?DOSE FORM: NOT SPECIFIED
  42. METRONIDAZOLE [Suspect]
     Active Substance: METRONIDAZOLE
     Dosage: PATIENT ROA: UNKNOWN
  43. MORPHINE SULFATE [Suspect]
     Active Substance: MORPHINE SULFATE
     Indication: Product used for unknown indication
     Dosage: PATIENT ROA: UNKNOWN?DOSE FORM: NOT SPECIFIED
  44. MORPHINE SULFATE [Suspect]
     Active Substance: MORPHINE SULFATE
     Dosage: PATIENT ROA: UNKNOWN
  45. MUPIROCIN CALCIUM [Suspect]
     Active Substance: MUPIROCIN CALCIUM
     Indication: Product used for unknown indication
     Dosage: PATIENT ROA: UNKNOWN
  46. NICODERM CQ [Suspect]
     Active Substance: NICOTINE
     Indication: Product used for unknown indication
     Dosage: DOSE FORM: PATCH
     Route: 062
  47. NICOTINE POLACRILEX [Suspect]
     Active Substance: NICOTINE
     Indication: Product used for unknown indication
     Dosage: PATIENT ROA: UNKNOWN
  48. PANTOPRAZOLE [Suspect]
     Active Substance: PANTOPRAZOLE
     Indication: Product used for unknown indication
     Dosage: PATIENT ROA: UNKNOWN?DOSE FORM: NOT SPECIFIED
  49. XANTOFYL PALMITATE [Suspect]
     Active Substance: XANTOFYL PALMITATE
     Indication: Product used for unknown indication
     Dosage: PATIENT ROA: UNKNOWN
  50. ZEAXANTHIN [Suspect]
     Active Substance: ZEAXANTHIN
     Indication: Product used for unknown indication
     Dosage: PATIENT ROA: UNKNOWN
  51. ZINC OXIDE [Suspect]
     Active Substance: ZINC OXIDE
     Indication: Product used for unknown indication
     Dosage: PATIENT ROA: UNKNOWN?DOSE FORM: NOT SPECIFIED
  52. AMOXICILLIN TRIHYDRATE [Suspect]
     Active Substance: AMOXICILLIN
     Indication: Product used for unknown indication
     Dosage: PATIENT ROA: UNKNOWN
  53. AMOXICILLIN TRIHYDRATE [Suspect]
     Active Substance: AMOXICILLIN
     Dosage: PATIENT ROA: UNKNOWN
  54. ATORVASTATIN CALCIUM [Suspect]
     Active Substance: ATORVASTATIN CALCIUM
     Indication: Product used for unknown indication
     Dosage: PATIENT ROA: UNKNOWN
  55. ATORVASTATIN CALCIUM [Suspect]
     Active Substance: ATORVASTATIN CALCIUM
     Dosage: PATIENT ROA: UNKNOWN?DOSE FORM: NOT SPECIFIED
  56. ATROPINE SULFATE\DIPHENOXYLATE HYDROCHLORIDE [Suspect]
     Active Substance: ATROPINE SULFATE\DIPHENOXYLATE HYDROCHLORIDE
     Indication: Product used for unknown indication
     Dosage: PATIENT ROA: UNKNOWN
  57. AZITHROMYCIN [Suspect]
     Active Substance: AZITHROMYCIN
     Indication: Product used for unknown indication
     Dosage: PATIENT ROA: UNKNOWN?DOSE FORM: NOT SPECIFIED
  58. FLUTICASONE FUROATE [Suspect]
     Active Substance: FLUTICASONE FUROATE
     Indication: Product used for unknown indication
     Dosage: PATIENT ROA: UNKNOWN
  59. GLYCERIN [Suspect]
     Active Substance: GLYCERIN
     Indication: Product used for unknown indication
     Dosage: DOSE FORM: NOT SPECIFIED
     Route: 048
  60. HUMIRA [Suspect]
     Active Substance: ADALIMUMAB
     Indication: Crohn^s disease
     Dosage: DOSE FORM: SOLUTION SUBCUTANEOUS
     Route: 058
  61. HYDROCHLOROTHIAZIDE [Suspect]
     Active Substance: HYDROCHLOROTHIAZIDE
     Indication: Product used for unknown indication
     Dosage: PATIENT ROA: UNKNOWN
  62. HYDROCHLOROTHIAZIDE [Suspect]
     Active Substance: HYDROCHLOROTHIAZIDE
     Dosage: PATIENT ROA: UNKNOWN
  63. IMODIUM [Suspect]
     Active Substance: LOPERAMIDE HYDROCHLORIDE
     Indication: Product used for unknown indication
     Dosage: PATIENT ROA: UNKNOWN?DOSE FORM: NOT SPECIFIED
  64. LOPERAMIDE HYDROCHLORIDE [Suspect]
     Active Substance: LOPERAMIDE HYDROCHLORIDE
     Indication: Product used for unknown indication
     Dosage: PATIENT ROA: UNKNOWN
  65. MAGNESIUM OXIDE [Suspect]
     Active Substance: MAGNESIUM OXIDE
     Indication: Product used for unknown indication
     Dosage: PATIENT ROA: UNKNOWN?DOSE FORM: NOT SPECIFIED
  66. MAGNESIUM SULFATE [Suspect]
     Active Substance: MAGNESIUM SULFATE
     Indication: Product used for unknown indication
     Dosage: PATIENT ROA: UNKNOWN?DOSE FORM: NOT SPECIFIED
  67. MUPIROCIN [Suspect]
     Active Substance: MUPIROCIN
     Indication: Product used for unknown indication
     Dosage: DOSE FORM: OINTMENT TOPICAL?PATIENT ROA: TOPICAL
  68. NADOLOL [Suspect]
     Active Substance: NADOLOL
     Indication: Product used for unknown indication
     Dosage: PATIENT ROA: UNKNOWN
  69. PREDNISONE [Suspect]
     Active Substance: PREDNISONE
     Indication: Product used for unknown indication
     Dosage: PATIENT ROA: UNKNOWN?DOSE FORM: NOT SPECIFIED
  70. PREDNISONE [Suspect]
     Active Substance: PREDNISONE
     Dosage: PATIENT ROA: UNKNOWN
  71. PREGABALIN [Suspect]
     Active Substance: PREGABALIN
     Indication: Product used for unknown indication
     Dosage: PATIENT ROA: UNKNOWN
  72. PREGABALIN [Suspect]
     Active Substance: PREGABALIN
     Dosage: PATIENT ROA: UNKNOWN
  73. PULMICORT TURBUHALER [Suspect]
     Active Substance: BUDESONIDE
     Indication: Product used for unknown indication
     Dosage: PATIENT ROA: UNKNOWN?DOSE FORM: NOT SPECIFIED
  74. SODIUM BICARBONATE\SODIUM CHLORIDE [Suspect]
     Active Substance: SODIUM BICARBONATE\SODIUM CHLORIDE
     Indication: Product used for unknown indication
     Dosage: PATIENT ROA:INTRA-NASAL?DOSE FORM: SOLUTION NASAL
  75. CARBOXYMETHYLCELLULOSE SODIUM [Suspect]
     Active Substance: CARBOXYMETHYLCELLULOSE SODIUM
     Indication: Product used for unknown indication
     Dosage: PATIENT ROA: UNKNOWN?DOSE FORM: NOT SPECIFIED
  76. CARBOXYMETHYLCELLULOSE SODIUM [Suspect]
     Active Substance: CARBOXYMETHYLCELLULOSE SODIUM
     Dosage: PATIENT ROA: UNKNOWN
  77. SODIUM CHLORIDE [Suspect]
     Active Substance: SODIUM CHLORIDE
     Indication: Product used for unknown indication
     Dosage: PATIENT ROA: OTHER?DOSE FORM: NOT SPECIFIED
  78. SULFAMETHOXAZOLE\TRIMETHOPRIM [Suspect]
     Active Substance: SULFAMETHOXAZOLE\TRIMETHOPRIM
     Indication: Product used for unknown indication
     Dosage: PATIENT ROA: UNKNOWN?DOSE FORM: NOT SPECIFIED
  79. TRIAMCINOLONE ACETONIDE [Suspect]
     Active Substance: TRIAMCINOLONE ACETONIDE
     Indication: Product used for unknown indication
     Dosage: DOSE FORM: SUSPENSION INTRA- ARTICULAR
     Route: 014
  80. VALSARTAN [Concomitant]
     Active Substance: VALSARTAN
     Indication: Product used for unknown indication
     Dosage: PATIENT ROA: UNKNOWN?DOSE FORM: NOT SPECIFIED
  81. VITAMIN D3 [Suspect]
     Active Substance: CHOLECALCIFEROL
     Indication: Product used for unknown indication
     Dosage: PATIENT ROA: UNKNOWN
  82. VITAMIN D3 [Suspect]
     Active Substance: CHOLECALCIFEROL
     Dosage: PATIENT ROA: UNKNOWN

REACTIONS (2)
  - Macular degeneration [Unknown]
  - Drug ineffective [Unknown]
